FAERS Safety Report 23569625 (Version 2)
Quarter: 2024Q1

REPORT INFORMATION
  Report Type: Spontaneous
  Country: FR (occurrence: FR)
  Receive Date: 20240227
  Receipt Date: 20240313
  Transmission Date: 20240409
  Serious: Yes (Life-Threatening, Hospitalization)
  Sender: FDA-Public Use
  Company Number: None

PATIENT
  Age: 63 Year
  Sex: Female
  Weight: 63 kg

DRUGS (2)
  1. METHOTREXATE [Suspect]
     Active Substance: METHOTREXATE
     Indication: Ankylosing spondylitis
     Dates: start: 20130101
  2. SECUKINUMAB [Suspect]
     Active Substance: SECUKINUMAB
     Indication: Ankylosing spondylitis
     Dates: start: 20160101

REACTIONS (1)
  - Meningitis meningococcal [Recovered/Resolved with Sequelae]

NARRATIVE: CASE EVENT DATE: 20240119
